FAERS Safety Report 4963837-6 (Version None)
Quarter: 2006Q1

REPORT INFORMATION
  Report Type: 
  Country: None (occurrence: None)
  Receive Date: 20060330
  Receipt Date: 20060313
  Transmission Date: 20060701
  Serious: Yes (Other)
  Sender: FDA-Public Use
  Company Number: IE200603000673

PATIENT
  Age: 64 Year
  Sex: Female
  Weight: 62.2 kg

DRUGS (2)
  1. FORTEO [Suspect]
     Indication: OSTEOPOROSIS
     Dosage: 20 UG, DAILY (1/D), SUBCUTANEOUS
     Route: 058
     Dates: start: 20051104, end: 20060301
  2. FORTEO PEN (FORTEO PEN) [Concomitant]

REACTIONS (6)
  - ARTHRALGIA [None]
  - BACK PAIN [None]
  - DECREASED APPETITE [None]
  - HEADACHE [None]
  - LETHARGY [None]
  - NAUSEA [None]
